FAERS Safety Report 14840712 (Version 1)
Quarter: 2018Q2

REPORT INFORMATION
  Report Type: Spontaneous
  Country: DE (occurrence: DE)
  Receive Date: 20180503
  Receipt Date: 20180503
  Transmission Date: 20180711
  Serious: Yes (Hospitalization)
  Sender: FDA-Public Use
  Company Number: DE-WEST-WARD PHARMACEUTICALS CORP.-DE-H14001-18-03577

PATIENT
  Age: 49 Year
  Sex: Female

DRUGS (4)
  1. IBUPROFEN. [Concomitant]
     Active Substance: IBUPROFEN
     Indication: PRODUCT USED FOR UNKNOWN INDICATION
     Dosage: 400 MG, 1-0-0-0 ()
     Route: 065
  2. FORMOTEROL [Concomitant]
     Active Substance: FORMOTEROL
     Indication: PRODUCT USED FOR UNKNOWN INDICATION
     Dosage: 12 ?G, 1-0-0-0 ()
     Route: 055
  3. BUDESONIDE. [Concomitant]
     Active Substance: BUDESONIDE
     Indication: PRODUCT USED FOR UNKNOWN INDICATION
     Dosage: 400 ?G, 1-0-0-0 ()
     Route: 055
  4. CEFUROXIME. [Suspect]
     Active Substance: CEFUROXIME
     Indication: PRODUCT USED FOR UNKNOWN INDICATION
     Dosage: 500 MG, NK ()

REACTIONS (1)
  - Rash [Unknown]

NARRATIVE: CASE EVENT DATE: 20160411
